FAERS Safety Report 9739473 (Version 1)
Quarter: 2013Q4

REPORT INFORMATION
  Report Type: Report from Study
  Country: LB (occurrence: LB)
  Receive Date: 20131209
  Receipt Date: 20131209
  Transmission Date: 20140711
  Serious: Yes (Hospitalization)
  Sender: FDA-Public Use
  Company Number: LB-SA-2013SA125167

PATIENT
  Age: 74 Year
  Sex: Female

DRUGS (6)
  1. LANTUS [Suspect]
     Indication: DIABETES MELLITUS
     Dosage: DAILY DOSE:15-25U
     Route: 058
     Dates: start: 2013
  2. SIOFOR [Concomitant]
     Indication: DIABETES MELLITUS
     Route: 048
  3. AMARYL [Concomitant]
     Indication: DIABETES MELLITUS
     Route: 048
  4. BLOKIUM [Concomitant]
  5. GINKGO BILOBA [Concomitant]
     Route: 048
  6. SIFROL [Concomitant]
     Route: 048

REACTIONS (5)
  - Hypertension [Unknown]
  - Vertigo [Unknown]
  - Injury [Unknown]
  - Head injury [Unknown]
  - Fall [Unknown]
